FAERS Safety Report 10529859 (Version 2)
Quarter: 2015Q2

REPORT INFORMATION
  Report Type: Spontaneous
  Country: US (occurrence: None)
  Receive Date: 20141017
  Receipt Date: 20150506
  Transmission Date: 20150821
  Serious: Yes (Hospitalization, Other)
  Sender: FDA-Public Use
  Company Number: ADR-2014-01905

PATIENT
  Age: 27 Year
  Sex: Male

DRUGS (1)
  1. BACLOFEN INTRATHECAL [Suspect]
     Active Substance: BACLOFEN
     Indication: MUSCLE SPASTICITY

REACTIONS (13)
  - Muscular weakness [None]
  - Pain [None]
  - Abasia [None]
  - General physical health deterioration [None]
  - Wheelchair user [None]
  - Sensory loss [None]
  - Weight increased [None]
  - Device leakage [None]
  - Drug administration error [None]
  - Hypotonia [None]
  - Incorrect dose administered by device [None]
  - Immobile [None]
  - Device battery issue [None]

NARRATIVE: CASE EVENT DATE: 20091013
